FAERS Safety Report 18602944 (Version 1)
Quarter: 2020Q4

REPORT INFORMATION
  Report Type: Spontaneous
  Country: US (occurrence: US)
  Receive Date: 20201210
  Receipt Date: 20201210
  Transmission Date: 20210114
  Serious: No
  Sender: FDA-Public Use
  Company Number: US-PERRIGO-20US015595

PATIENT
  Age: 62 Year
  Sex: Male
  Weight: 104.31 kg

DRUGS (2)
  1. ALBUTEROL SULFATE. [Suspect]
     Active Substance: ALBUTEROL SULFATE
     Dosage: UNKNOWN, PRN
     Route: 055
     Dates: start: 202010
  2. ALBUTEROL SULFATE. [Suspect]
     Active Substance: ALBUTEROL SULFATE
     Indication: ASTHMA
     Dosage: UNKNOWN, PRN
     Route: 055
     Dates: start: 202008, end: 202010

REACTIONS (3)
  - Underdose [Not Recovered/Not Resolved]
  - Device delivery system issue [Not Recovered/Not Resolved]
  - Therapeutic product effect incomplete [Unknown]

NARRATIVE: CASE EVENT DATE: 202008
